FAERS Safety Report 17403542 (Version 1)
Quarter: 2020Q1

REPORT INFORMATION
  Report Type: Spontaneous
  Country: FR (occurrence: FR)
  Receive Date: 20200211
  Receipt Date: 20200211
  Transmission Date: 20200409
  Serious: Yes (Hospitalization, Congenital Anomaly, Other)
  Sender: FDA-Public Use
  Company Number: FR-MYLANLABS-2020M1014686

PATIENT
  Sex: Male

DRUGS (18)
  1. ASPEGIC                            /00002703/ [Suspect]
     Active Substance: ASPIRIN DL-LYSINE
     Dosage: 1 AT LUNCH
     Route: 064
     Dates: start: 20110202, end: 20110301
  2. URBANYL [Suspect]
     Active Substance: CLOBAZAM
     Indication: PRODUCT USED FOR UNKNOWN INDICATION
     Dosage: 1 IN THE MORNING AND ? IN THE EVENING
     Route: 064
     Dates: start: 20110202, end: 20110301
  3. DEPAKINE CHRONO [Suspect]
     Active Substance: VALPROATE SODIUM
     Indication: PRODUCT USED FOR UNKNOWN INDICATION
     Dosage: 1 ,5 TABLETS IN THE MORNING AND 2 IN THE EVENING DURING 5 DAYS
     Route: 064
     Dates: start: 20110105, end: 20110202
  4. URBANYL [Suspect]
     Active Substance: CLOBAZAM
     Dosage: 1 IN THE MORNING AND ? IN THE EVENING
     Route: 064
     Dates: start: 20110526, end: 20110802
  5. URBANYL [Suspect]
     Active Substance: CLOBAZAM
     Dosage: 1 IN THE EVENING
     Route: 064
     Dates: start: 20110301, end: 20110526
  6. SPECIAFOLDINE [Concomitant]
     Active Substance: FOLIC ACID
     Dosage: 1 IN THE MORNING AND IN THE EVENING
     Route: 064
     Dates: start: 20110202, end: 20110301
  7. LEVETIRACETAM. [Suspect]
     Active Substance: LEVETIRACETAM
     Indication: PRODUCT USED FOR UNKNOWN INDICATION
     Dosage: 3 IN THE MORNING AND IN THE EVENING
     Route: 064
     Dates: start: 20110526, end: 20110802
  8. DEPAKINE CHRONO [Suspect]
     Active Substance: VALPROATE SODIUM
     Dosage: PROGRESSIVE DIMINUTION
     Route: 064
     Dates: start: 20110202, end: 20110301
  9. DEPAKINE CHRONO [Suspect]
     Active Substance: VALPROATE SODIUM
     Dosage: 1 IN THE EVENING
     Route: 064
     Dates: start: 20110301, end: 20110526
  10. LEVETIRACETAM. [Suspect]
     Active Substance: LEVETIRACETAM
     Dosage: 2 UNK, BID
     Route: 064
     Dates: start: 20110105, end: 20110202
  11. ASPEGIC                            /00002703/ [Suspect]
     Active Substance: ASPIRIN DL-LYSINE
     Indication: PRODUCT USED FOR UNKNOWN INDICATION
     Dosage: 1 PER DAY
     Route: 064
     Dates: start: 20110301, end: 20110526
  12. SPECIAFOLDINE [Concomitant]
     Active Substance: FOLIC ACID
     Dosage: 2 IN THE MORNING AND IN THE EVENING
     Route: 064
     Dates: start: 20110105, end: 20110202
  13. LEVETIRACETAM. [Suspect]
     Active Substance: LEVETIRACETAM
     Dosage: 3 IN THE MORNING AND IN THE EVENING
     Route: 064
     Dates: start: 20110301, end: 20110526
  14. ASPEGIC                            /00002703/ [Suspect]
     Active Substance: ASPIRIN DL-LYSINE
     Dosage: 1 PER DAY
     Route: 064
     Dates: start: 20110526, end: 20110802
  15. URBANYL [Suspect]
     Active Substance: CLOBAZAM
     Dosage: 1 IN THE MORNING
     Route: 064
     Dates: start: 20110105, end: 20110202
  16. LEVETIRACETAM. [Suspect]
     Active Substance: LEVETIRACETAM
     Dosage: 1 IN THE MORNING AND 2 IN THE EVENING THEN 1 IN THE MORNING AND IN THE EVENING
     Route: 064
     Dates: start: 20110202, end: 20110301
  17. SPECIAFOLDINE [Concomitant]
     Active Substance: FOLIC ACID
     Dosage: 5 MG, QD
     Route: 064
     Dates: start: 20110526, end: 20110802
  18. DEPAKINE CHRONO [Suspect]
     Active Substance: VALPROATE SODIUM
     Dosage: UNK
     Route: 064
     Dates: start: 201012, end: 20110802

REACTIONS (46)
  - Autism spectrum disorder [Unknown]
  - Tracheitis [Unknown]
  - Bronchiolitis [Unknown]
  - Fall [Unknown]
  - Laryngitis [Unknown]
  - Nervousness [Unknown]
  - Anger [Unknown]
  - Syncope [Unknown]
  - Learning disorder [Unknown]
  - Impulsive behaviour [Unknown]
  - Speech disorder developmental [Unknown]
  - Foetal exposure during pregnancy [Unknown]
  - Head injury [Unknown]
  - Joint laxity [Unknown]
  - Cardiac murmur functional [Unknown]
  - Dyspraxia [Unknown]
  - Neonatal respiratory distress syndrome [Unknown]
  - Dysmorphism [Unknown]
  - Irritability [Unknown]
  - Congenital infection [Unknown]
  - School refusal [Unknown]
  - Presyncope [Unknown]
  - Motor developmental delay [Unknown]
  - Aggression [Unknown]
  - Vomiting [Unknown]
  - Foetal anticonvulsant syndrome [Unknown]
  - Dysgraphia [Unknown]
  - Attention deficit/hyperactivity disorder [Unknown]
  - Congenital hand malformation [Unknown]
  - Epilepsy [Unknown]
  - Behaviour disorder [Unknown]
  - Psychomotor retardation [Unknown]
  - Nasopharyngitis [Unknown]
  - Arthropathy [Unknown]
  - Regurgitation [Unknown]
  - Disturbance in attention [Unknown]
  - Clonic convulsion [Unknown]
  - Bronchitis [Unknown]
  - Hand-eye coordination impaired [Unknown]
  - Malaise [Unknown]
  - Intellectual disability [Unknown]
  - Ear malformation [Unknown]
  - Cognitive disorder [Unknown]
  - Frustration tolerance decreased [Unknown]
  - Psychomotor hyperactivity [Unknown]
  - Abnormal behaviour [Unknown]

NARRATIVE: CASE EVENT DATE: 20110911
